FAERS Safety Report 9735544 (Version 1)
Quarter: 2013Q4

REPORT INFORMATION
  Report Type: Spontaneous
  Country: US (occurrence: US)
  Receive Date: 20131206
  Receipt Date: 20131206
  Transmission Date: 20140711
  Serious: No
  Sender: FDA-Public Use
  Company Number: US-GILEAD-2009-0023617

PATIENT
  Sex: Female
  Weight: 81.65 kg

DRUGS (13)
  1. LETAIRIS [Suspect]
     Indication: PULMONARY ARTERIAL HYPERTENSION
     Route: 048
     Dates: start: 20090629
  2. LASIX [Concomitant]
  3. SOTALOL [Concomitant]
  4. NAPROSYN [Concomitant]
  5. ZYRTEC [Concomitant]
  6. ISOSORBIDE MN [Concomitant]
  7. ASPIRIN [Concomitant]
  8. POTASSIUM CHLORIDE [Concomitant]
  9. LEXAPRO [Concomitant]
  10. ULTRA MEGA VITAMIN [Concomitant]
  11. PLAVIX [Concomitant]
  12. PREVACID [Concomitant]
  13. GARLIC [Concomitant]

REACTIONS (1)
  - Local swelling [Unknown]
